FAERS Safety Report 18873738 (Version 1)
Quarter: 2021Q1

REPORT INFORMATION
  Report Type: Spontaneous
  Country: US (occurrence: US)
  Receive Date: 20210210
  Receipt Date: 20210210
  Transmission Date: 20210420
  Serious: No
  Sender: FDA-Public Use
  Company Number: US-ELI_LILLY_AND_COMPANY-US202102001982

PATIENT
  Age: 32 Year
  Sex: Male

DRUGS (2)
  1. EMGALITY [Suspect]
     Active Substance: GALCANEZUMAB-GNLM
     Dosage: 120 MG, MONTHLY (1/M)
     Route: 065
  2. EMGALITY [Suspect]
     Active Substance: GALCANEZUMAB-GNLM
     Indication: MIGRAINE PROPHYLAXIS
     Dosage: 240 MG, AS LOADING DOSE
     Route: 065
     Dates: start: 20201001

REACTIONS (2)
  - Drug effect less than expected [Not Recovered/Not Resolved]
  - Neck injury [Not Recovered/Not Resolved]

NARRATIVE: CASE EVENT DATE: 20201001
